FAERS Safety Report 13342527 (Version 1)
Quarter: 2017Q1

REPORT INFORMATION
  Report Type: Spontaneous
  Country: US (occurrence: US)
  Receive Date: 20170316
  Receipt Date: 20170316
  Transmission Date: 20170428
  Serious: Yes (Death)
  Sender: FDA-Public Use
  Company Number: US-ASTELLAS-2017US010100

PATIENT
  Age: 66 Year
  Sex: Male

DRUGS (1)
  1. TARCEVA [Suspect]
     Active Substance: ERLOTINIB HYDROCHLORIDE
     Indication: WHITE BLOOD CELL DISORDER
     Route: 048
     Dates: start: 20170210, end: 20170219

REACTIONS (1)
  - Death [Fatal]

NARRATIVE: CASE EVENT DATE: 20170219
